FAERS Safety Report 8391169-5 (Version None)
Quarter: 2012Q2

REPORT INFORMATION
  Report Type: 
  Country: None (occurrence: None)
  Receive Date: 20120517
  Receipt Date: 20120514
  Transmission Date: 20120825
  Serious: Yes (Hospitalization)
  Sender: FDA-Public Use
  Company Number: 2012SP020796

PATIENT
  Age: 40 Year
  Sex: Female

DRUGS (4)
  1. CHORIONIC GONADOTROPIN [Suspect]
     Indication: INFERTILITY
  2. CHORIONIC GONADOTROPIN [Suspect]
     Indication: INFERTILITY
  3. PREDNISOLONE [Concomitant]
  4. TACROLIMUS [Concomitant]

REACTIONS (6)
  - MATERNAL EXPOSURE BEFORE PREGNANCY [None]
  - BASEDOW'S DISEASE [None]
  - CAESAREAN SECTION [None]
  - CEPHALO-PELVIC DISPROPORTION [None]
  - PREGNANCY [None]
  - UTERINE HYPOTONUS [None]
